FAERS Safety Report 8237024-2 (Version None)
Quarter: 2012Q1

REPORT INFORMATION
  Report Type: 
  Country: None (occurrence: None)
  Receive Date: 20120327
  Receipt Date: 20120322
  Transmission Date: 20120608
  Serious: Yes (Other)
  Sender: FDA-Public Use
  Company Number: PHEH2008US03404

PATIENT
  Sex: Female

DRUGS (11)
  1. METFORMIN HCL [Concomitant]
  2. XELODA [Concomitant]
  3. AMOXICILLIN [Concomitant]
  4. ARIMIDEX [Concomitant]
     Dates: start: 20031201
  5. FULVESTRANT [Concomitant]
  6. ZOMETA [Suspect]
     Dosage: 4 MG, QMO
     Dates: start: 20031201
  7. TRIAMTERENE AND HYDROCHLOROTHIAZID [Concomitant]
  8. PENICILLIN V POTASSIUM [Concomitant]
  9. AROMASIN [Concomitant]
  10. HYZAAR [Concomitant]
  11. LAPATINIB DITOSYLATE [Concomitant]

REACTIONS (54)
  - INJURY [None]
  - EMOTIONAL DISTRESS [None]
  - ORAL CAVITY FISTULA [None]
  - PRIMARY SEQUESTRUM [None]
  - INTERVERTEBRAL DISC DEGENERATION [None]
  - RENAL FAILURE CHRONIC [None]
  - ESSENTIAL HYPERTENSION [None]
  - TENDERNESS [None]
  - SEBORRHOEIC KERATOSIS [None]
  - HYPERLIPIDAEMIA [None]
  - BLOOD CREATININE INCREASED [None]
  - OESOPHAGEAL MASS [None]
  - SQUAMOUS CELL CARCINOMA [None]
  - SYNOVIAL CYST [None]
  - ACTINIC KERATOSIS [None]
  - VISION BLURRED [None]
  - HEPATIC LESION [None]
  - HAEMANGIOMA [None]
  - TRICUSPID VALVE INCOMPETENCE [None]
  - MITRAL VALVE INCOMPETENCE [None]
  - FATIGUE [None]
  - OSTEOPENIA [None]
  - OSTEONECROSIS OF JAW [None]
  - SCAR [None]
  - OESOPHAGITIS [None]
  - BONE LESION [None]
  - METASTASES TO BONE [None]
  - METASTASES TO SPINE [None]
  - SYNCOPE [None]
  - BLISTER [None]
  - PAIN [None]
  - INFECTION [None]
  - PHYSICAL DISABILITY [None]
  - NEOPLASM MALIGNANT [None]
  - THYROID NEOPLASM [None]
  - EYE PAIN [None]
  - NEPHROLITHIASIS [None]
  - RENAL FAILURE ACUTE [None]
  - DIASTOLIC DYSFUNCTION [None]
  - PROTEINURIA [None]
  - MELANOCYTIC NAEVUS [None]
  - ANXIETY [None]
  - OSTEOARTHRITIS [None]
  - RENAL CYST [None]
  - GASTROOESOPHAGEAL REFLUX DISEASE [None]
  - UTERINE LEIOMYOMA [None]
  - ULCERATIVE KERATITIS [None]
  - EYE PRURITUS [None]
  - UPPER RESPIRATORY TRACT INFECTION [None]
  - INTERVERTEBRAL DISC PROTRUSION [None]
  - PAIN IN JAW [None]
  - LYMPHADENOPATHY [None]
  - SCOLIOSIS [None]
  - BURSITIS [None]
